FAERS Safety Report 9402825 (Version 1)
Quarter: 2013Q3

REPORT INFORMATION
  Report Type: Spontaneous
  Country: CH (occurrence: CH)
  Receive Date: 20130716
  Receipt Date: 20130716
  Transmission Date: 20140515
  Serious: Yes (Hospitalization)
  Sender: FDA-Public Use
  Company Number: PHHY2013CH073850

PATIENT
  Age: 8 Year
  Sex: Female
  Weight: 30 kg

DRUGS (10)
  1. ESIDREX [Suspect]
     Dosage: 12.5 MG, UNK
     Route: 048
     Dates: start: 201212
  2. DIGOXIN [Suspect]
     Indication: ADENOVIRUS INFECTION
     Dosage: 0.1 MG, UNK
     Route: 048
     Dates: start: 201212
  3. CARVEDILOL [Suspect]
     Indication: ADENOVIRUS INFECTION
     Dosage: 7 MG, UNK
     Route: 048
     Dates: start: 201212
  4. NOPIL FORTE [Suspect]
     Indication: ADENOVIRUS INFECTION
     Dosage: 540 MG, UNK
     Route: 048
     Dates: start: 201212, end: 20130424
  5. CLEXANE [Suspect]
     Indication: ADENOVIRUS INFECTION
     Dosage: 27 MG, UNK
     Route: 058
     Dates: start: 201212
  6. VALTREX [Suspect]
     Dosage: 500 MG, UNK
     Route: 048
     Dates: start: 201212, end: 20130424
  7. ALDACTONE [Suspect]
     Indication: ADENOVIRUS INFECTION
     Dosage: 12.5 MG, UNK
     Route: 048
     Dates: start: 201212
  8. NEXUM [Suspect]
     Dosage: 40 MG, UNK
     Route: 048
     Dates: start: 201212, end: 20130424
  9. MAGNESIOCARD [Concomitant]
     Dosage: 5 MMOL, UNK
     Route: 048
     Dates: start: 201212, end: 20130424
  10. KALIUM [Concomitant]
     Dosage: 30 MMOL, UNK
     Route: 048
     Dates: start: 201212, end: 20130424

REACTIONS (1)
  - Pancytopenia [Recovered/Resolved]
